FAERS Safety Report 18135542 (Version 6)
Quarter: 2021Q3

REPORT INFORMATION
  Report Type: Report from Study
  Country: US (occurrence: US)
  Receive Date: 20200811
  Receipt Date: 20210924
  Transmission Date: 20211014
  Serious: Yes (Hospitalization, Other)
  Sender: FDA-Public Use
  Company Number: US-SHIRE-US202025615

PATIENT
  Age: 52 Year
  Sex: Female
  Weight: 80 kg

DRUGS (43)
  1. TRESIBA [Concomitant]
     Active Substance: INSULIN DEGLUDEC
  2. FLECAINIDE ACETATE. [Concomitant]
     Active Substance: FLECAINIDE ACETATE
  3. MONTELUKAST SODIUM. [Concomitant]
     Active Substance: MONTELUKAST SODIUM
  4. DILTIAZEM. [Concomitant]
     Active Substance: DILTIAZEM
  5. VITAMINS NOS [Concomitant]
     Active Substance: VITAMINS
  6. METOCLOPRAMIDE. [Concomitant]
     Active Substance: METOCLOPRAMIDE
  7. OXYCODONE [Concomitant]
     Active Substance: OXYCODONE
  8. ROPINIROLE. [Concomitant]
     Active Substance: ROPINIROLE
  9. LOVENOX [Concomitant]
     Active Substance: ENOXAPARIN SODIUM
  10. CUVITRU [Suspect]
     Active Substance: HUMAN IMMUNOGLOBULIN G
     Indication: IMMUNODEFICIENCY COMMON VARIABLE
     Dosage: 20 GRAM, 1X/2WKS
     Route: 058
     Dates: start: 20200714
  11. CUVITRU [Suspect]
     Active Substance: HUMAN IMMUNOGLOBULIN G
     Dosage: 20 GRAM, Q2WEEKS
     Route: 058
     Dates: start: 20200716
  12. LYRICA [Concomitant]
     Active Substance: PREGABALIN
  13. DOXYCYCLINE HYCLATE. [Concomitant]
     Active Substance: DOXYCYCLINE HYCLATE
  14. ATORVASTATIN CALCIUM. [Concomitant]
     Active Substance: ATORVASTATIN CALCIUM
  15. XOPENEX HFA [Concomitant]
     Active Substance: LEVALBUTEROL TARTRATE
  16. HYDRALAZINE [Concomitant]
     Active Substance: HYDRALAZINE HYDROCHLORIDE
  17. CUVITRU [Suspect]
     Active Substance: HUMAN IMMUNOGLOBULIN G
     Dosage: 20 GRAM, 1X/2WKS
     Route: 058
     Dates: start: 20200716
  18. OXYGEN. [Concomitant]
     Active Substance: OXYGEN
  19. FLUTICASONE PROPIONATE. [Concomitant]
     Active Substance: FLUTICASONE PROPIONATE
  20. ACETAMINOPHEN. [Concomitant]
     Active Substance: ACETAMINOPHEN
  21. LMX4 [Concomitant]
     Active Substance: LIDOCAINE
  22. HYDRALAZINE HCL [Concomitant]
     Active Substance: HYDRALAZINE HYDROCHLORIDE
  23. ZINC. [Concomitant]
     Active Substance: ZINC
  24. ATORVASTATIN [Concomitant]
     Active Substance: ATORVASTATIN
  25. MONTELUKAST [Concomitant]
     Active Substance: MONTELUKAST SODIUM
  26. LEVALBUTEROL. [Concomitant]
     Active Substance: LEVALBUTEROL
  27. FENOFIBRATE. [Concomitant]
     Active Substance: FENOFIBRATE
  28. ROPINIROLE HCL [Concomitant]
     Active Substance: ROPINIROLE HYDROCHLORIDE
  29. ADVAIR HFA [Concomitant]
     Active Substance: FLUTICASONE PROPIONATE\SALMETEROL XINAFOATE
  30. CALCIUM 600 + D3 PLUS MINERALS [Concomitant]
  31. XOPENEX [Concomitant]
     Active Substance: LEVALBUTEROL HYDROCHLORIDE
  32. EPINEPHRINE. [Concomitant]
     Active Substance: EPINEPHRINE
  33. DEXAMETHASONE INTENSOL [Concomitant]
     Active Substance: DEXAMETHASONE
  34. POTASSIUM CHLORIDE. [Concomitant]
     Active Substance: POTASSIUM CHLORIDE
  35. PREDNISONE. [Concomitant]
     Active Substance: PREDNISONE
  36. METOCLOPRAMIDE HCL [Concomitant]
     Active Substance: METOCLOPRAMIDE HYDROCHLORIDE
  37. VITAMIN B12 [VITAMIN B12 NOS] [Concomitant]
     Active Substance: CYANOCOBALAMIN
  38. ONDANSETRON HCL [Concomitant]
     Active Substance: ONDANSETRON HYDROCHLORIDE
  39. DIPHENHYDRAMINE. [Concomitant]
     Active Substance: DIPHENHYDRAMINE
  40. NOVOLOG [Concomitant]
     Active Substance: INSULIN ASPART
  41. PANTOPRAZOLE [Concomitant]
     Active Substance: PANTOPRAZOLE
  42. OXYCODONE HYDROCHLORIDE. [Concomitant]
     Active Substance: OXYCODONE HYDROCHLORIDE
  43. VITAMIN D3 [Concomitant]
     Active Substance: CHOLECALCIFEROL

REACTIONS (8)
  - Rib fracture [Unknown]
  - Sepsis [Unknown]
  - Dehydration [Unknown]
  - Kidney infection [Unknown]
  - Weight fluctuation [Unknown]
  - Oxygen saturation decreased [Unknown]
  - Spinal fracture [Unknown]
  - Pulmonary thrombosis [Unknown]

NARRATIVE: CASE EVENT DATE: 20210505
